FAERS Safety Report 7007759-8 (Version None)
Quarter: 2010Q3

REPORT INFORMATION
  Report Type: 
  Country: None (occurrence: None)
  Receive Date: 20100922
  Receipt Date: 20100917
  Transmission Date: 20110219
  Serious: Yes (Death, Hospitalization, Other)
  Sender: FDA-Public Use
  Company Number: ES-ROXANE LABORATORIES, INC.-2010-RO-01241RO

PATIENT
  Age: 81 Year
  Sex: Male

DRUGS (11)
  1. FUROSEMIDE [Suspect]
  2. PREDNISONE [Suspect]
     Indication: NON-HODGKIN'S LYMPHOMA
     Dates: start: 20081101
  3. LANSOPRAZOLE [Suspect]
  4. PRAVASTATIN [Suspect]
  5. TAMSULOSINE [Suspect]
  6. ALLOPURINOL [Suspect]
  7. CYCLOSPORINE [Suspect]
     Indication: NON-HODGKIN'S LYMPHOMA
     Dates: start: 20081101
  8. VINCRISTINE [Suspect]
     Indication: NON-HODGKIN'S LYMPHOMA
     Dates: start: 20081101
  9. RITUXIMAB [Suspect]
     Indication: NON-HODGKIN'S LYMPHOMA
     Dates: start: 20081101
  10. RITUXIMAB [Suspect]
     Dates: start: 20090401
  11. TENOFOVIR [Suspect]
     Indication: HEPATITIS B
     Dosage: 300 MG

REACTIONS (5)
  - GENERAL PHYSICAL HEALTH DETERIORATION [None]
  - HEPATIC ENCEPHALOPATHY [None]
  - HEPATIC FAILURE [None]
  - HEPATITIS B [None]
  - PERITONITIS BACTERIAL [None]
